FAERS Safety Report 5597324-1 (Version None)
Quarter: 2007Q4

REPORT INFORMATION
  Report Type: 
  Country: None (occurrence: None)
  Receive Date: 20071221
  Receipt Date: 20071106
  Transmission Date: 20080405
  Serious: No
  Sender: FDA-Public Use
  Company Number: SPV1-2007-04873

PATIENT
  Age: 38 Year
  Sex: Male
  Weight: 77.1 kg

DRUGS (2)
  1. VYVANSE [Suspect]
     Indication: OBSESSIVE-COMPULSIVE DISORDER
     Dosage: 70 MG, 1X/DAY:QD, ORAL
     Route: 048
     Dates: start: 20071001
  2. PROZAC [Concomitant]

REACTIONS (4)
  - APATHY [None]
  - DEPRESSED MOOD [None]
  - DRUG EFFECT DECREASED [None]
  - OFF LABEL USE [None]
